FAERS Safety Report 7494485-4 (Version None)
Quarter: 2011Q2

REPORT INFORMATION
  Report Type: 
  Country: None (occurrence: None)
  Receive Date: 20110520
  Receipt Date: 20110511
  Transmission Date: 20111010
  Serious: Yes (Hospitalization, Disabling, Other)
  Sender: FDA-Public Use
  Company Number: US-ASTRAZENECA-2008UW07076

PATIENT
  Age: 73 Year
  Sex: Female
  Weight: 77.1 kg

DRUGS (7)
  1. DIGOXIN [Concomitant]
  2. ARIMIDEX [Suspect]
     Indication: BREAST CANCER
     Dosage: 1 MG
     Route: 048
     Dates: start: 20040101
  3. BLOOD PRESSURE PILL [Concomitant]
  4. HEART MEDICATION [Concomitant]
  5. XANAX [Concomitant]
  6. PAIN MEDICATION [Concomitant]
  7. HYDROCHLOROTHIAZIDE [Concomitant]

REACTIONS (11)
  - PANIC ATTACK [None]
  - TACHYCARDIA [None]
  - ABASIA [None]
  - VASCULAR GRAFT [None]
  - ARTHRITIS [None]
  - SPINAL COLUMN STENOSIS [None]
  - HYPERTENSION [None]
  - ANGIOPATHY [None]
  - NERVE INJURY [None]
  - PAIN IN EXTREMITY [None]
  - ARTHRALGIA [None]
